FAERS Safety Report 15538258 (Version 1)
Quarter: 2018Q4

REPORT INFORMATION
  Report Type: Report from Study
  Country: ES (occurrence: ES)
  Receive Date: 20181022
  Receipt Date: 20181022
  Transmission Date: 20190205
  Serious: Yes (Hospitalization)
  Sender: FDA-Public Use
  Company Number: ES-TEVA-2018-ES-966777

PATIENT
  Age: 37 Year
  Sex: Female

DRUGS (6)
  1. MICOFENOLATO DE MOFETILO (7330LM) [Suspect]
     Active Substance: MYCOPHENOLATE MOFETIL
     Dosage: 180MG/12H
     Route: 048
     Dates: start: 20171010
  2. PARACETAMOL (12A) [Concomitant]
     Active Substance: ACETAMINOPHEN
     Dosage: 1GR/8H
     Route: 042
     Dates: start: 20171010
  3. INMUNOGLOBULINA ANTI TIMOCITICA (CONEJO) [Suspect]
     Active Substance: LAPINE T-LYMPHOCYTE IMMUNE GLOBULIN
     Dosage: 50 MG X 5 TOTAL DOSE
     Route: 042
     Dates: start: 20171010, end: 20171015
  4. PANTOPRAZOL (7275A) [Concomitant]
     Active Substance: PANTOPRAZOLE
     Dosage: 40 MG DAY
     Route: 042
     Dates: start: 20171010
  5. METAMIZOL (111A) [Concomitant]
     Active Substance: METAMIZOL SODIUM
     Dosage: 2GR/6H
     Route: 042
     Dates: start: 20171010
  6. METILPREDNISOLONA (888A) [Suspect]
     Active Substance: METHYLPREDNISOLONE
     Dosage: 100 MILLIGRAM DAILY; 100 MG DAY IN DESCENDING DOSAGE
     Route: 042
     Dates: start: 20171010

REACTIONS (1)
  - Pancreatitis acute [Recovered/Resolved]

NARRATIVE: CASE EVENT DATE: 20171011
